FAERS Safety Report 18901778 (Version 1)
Quarter: 2021Q1

REPORT INFORMATION
  Report Type: Spontaneous
  Country: GB (occurrence: GB)
  Receive Date: 20210216
  Receipt Date: 20210216
  Transmission Date: 20210420
  Serious: Yes (Other)
  Sender: FDA-Public Use
  Company Number: NVSC2021GB033679

PATIENT
  Age: 80 Year
  Sex: Male
  Weight: 68 kg

DRUGS (2)
  1. PARACETAMOL [Suspect]
     Active Substance: ACETAMINOPHEN
     Indication: PRODUCT USED FOR UNKNOWN INDICATION
     Dosage: UNK
     Route: 065
  2. INFLUENZA VIRUS [Concomitant]
     Active Substance: INFLUENZA VIRUS VACCINE
     Indication: CHA2DS2-VASC ANNUAL STROKE RISK LOW
     Dosage: UNK
     Route: 065
     Dates: start: 20200923

REACTIONS (1)
  - Arthralgia [Recovered/Resolved]

NARRATIVE: CASE EVENT DATE: 20201221
